FAERS Safety Report 8006194-3 (Version None)
Quarter: 2011Q4

REPORT INFORMATION
  Report Type: 
  Country: None (occurrence: None)
  Receive Date: 20111226
  Receipt Date: 20111220
  Transmission Date: 20120403
  Serious: Yes (Death, Hospitalization, Other)
  Sender: FDA-Public Use
  Company Number: PHHY2011AR110995

PATIENT
  Sex: Male

DRUGS (1)
  1. EXELON [Suspect]
     Indication: SENILE DEMENTIA
     Dosage: 9.5 MG\24 H
     Route: 062

REACTIONS (4)
  - PNEUMONIA [None]
  - DECREASED IMMUNE RESPONSIVENESS [None]
  - MALAISE [None]
  - INFARCTION [None]
